FAERS Safety Report 6199862-X (Version None)
Quarter: 2009Q2

REPORT INFORMATION
  Report Type: 
  Country: None (occurrence: None)
  Receive Date: 20090522
  Receipt Date: 20090514
  Transmission Date: 20091009
  Serious: Yes (Other)
  Sender: FDA-Public Use
  Company Number: US-PFIZER INC-2009213935

PATIENT
  Age: 40 Year
  Sex: Male

DRUGS (1)
  1. LIPITOR [Suspect]
     Dates: start: 20090301

REACTIONS (4)
  - FLATULENCE [None]
  - HEPATIC STEATOSIS [None]
  - SPLENOMEGALY [None]
  - UNEVALUABLE EVENT [None]
